FAERS Safety Report 7583478-4 (Version None)
Quarter: 2011Q2

REPORT INFORMATION
  Report Type: 
  Country: None (occurrence: None)
  Receive Date: 20110630
  Receipt Date: 20110628
  Transmission Date: 20111010
  Serious: Yes (Hospitalization)
  Sender: FDA-Public Use
  Company Number: JP-EISAI INC-E2090-01666-SPO-JP

PATIENT
  Age: 76 Year
  Sex: Female

DRUGS (6)
  1. FAMOTIDINE [Concomitant]
     Dosage: UNKNOWN
  2. URSO 250 [Concomitant]
     Dosage: UNKNOWN
     Route: 048
  3. UNASYN [Concomitant]
     Dosage: UNKNOWN
     Route: 042
  4. PREDNISOLONE [Concomitant]
     Dosage: UNKNOWN
  5. DEPAKENE [Concomitant]
     Dosage: UNKNOWN
     Route: 048
  6. ZONISAMIDE [Suspect]
     Indication: EPILEPSY
     Route: 048
     Dates: start: 20110501, end: 20110601

REACTIONS (1)
  - WHITE BLOOD CELL COUNT DECREASED [None]
